FAERS Safety Report 25995740 (Version 1)
Quarter: 2025Q4

REPORT INFORMATION
  Report Type: Spontaneous
  Country: US (occurrence: None)
  Receive Date: 20251104
  Receipt Date: 20251104
  Transmission Date: 20260118
  Serious: Yes (Hospitalization)
  Sender: FDA-CTU
  Company Number: None

PATIENT
  Age: 16 Month
  Sex: Female
  Weight: 8 kg

DRUGS (3)
  1. BLEOMYCIN [Suspect]
     Active Substance: BLEOMYCIN SULFATE
     Dates: end: 20250730
  2. CISPLATIN [Suspect]
     Active Substance: CISPLATIN
     Dates: end: 20250803
  3. ETOPOSIDE [Suspect]
     Active Substance: ETOPOSIDE
     Dates: end: 20250803

REACTIONS (2)
  - Catheter site infection [None]
  - Staphylococcal infection [None]

NARRATIVE: CASE EVENT DATE: 20250821
